FAERS Safety Report 15543374 (Version 1)
Quarter: 2018Q4

REPORT INFORMATION
  Report Type: Report from Study
  Country: None (occurrence: US)
  Receive Date: 20181023
  Receipt Date: 20181023
  Transmission Date: 20190205
  Serious: Yes (Other)
  Sender: FDA-Public Use
  Company Number: US-ABBVIE-18K-163-2525496-00

PATIENT
  Sex: Female

DRUGS (3)
  1. HUMIRA [Suspect]
     Active Substance: ADALIMUMAB
     Dosage: DAY 8 ONWARDS
     Route: 058
     Dates: start: 20180731, end: 20180821
  2. HUMIRA [Suspect]
     Active Substance: ADALIMUMAB
     Indication: PSORIASIS
     Dosage: DAY 1
     Route: 058
     Dates: start: 20180724, end: 20180724
  3. HUMIRA [Suspect]
     Active Substance: ADALIMUMAB
     Route: 058
     Dates: start: 20180830, end: 201810

REACTIONS (1)
  - Drug-induced liver injury [Unknown]

NARRATIVE: CASE EVENT DATE: 2018
